FAERS Safety Report 8783706 (Version 2)
Quarter: 2012Q4

REPORT INFORMATION
  Report Type: 
  Country: US (occurrence: US)
  Receive Date: 20120913
  Receipt Date: 20120913
  Transmission Date: 20130627
  Serious: Yes (Death, Hospitalization)
  Sender: FDA-Public Use
  Company Number: US-INCYTE CORPORATION-2012IN001020

PATIENT
  Age: 85 Year
  Sex: Female
  Weight: 53.52 kg

DRUGS (12)
  1. JAKAFI [Suspect]
     Indication: MYELOFIBROSIS
     Dosage: 10 mg, bid
     Route: 048
     Dates: start: 20120414, end: 20120510
  2. JAKAFI [Suspect]
     Dosage: 5 mg, bid
     Route: 048
     Dates: start: 20120511, end: 20120517
  3. JAKAFI [Suspect]
     Dosage: 5 mg, qd
     Route: 048
     Dates: start: 20120518, end: 20120531
  4. ASPIRIN [Concomitant]
     Dosage: 325 mg, bid
     Route: 048
     Dates: start: 20060502
  5. LOPERAMIDE [Concomitant]
     Dosage: UNK, prn
     Route: 048
     Dates: start: 20060502
  6. NOVOLOG [Concomitant]
     Dosage: As directed
  7. LANTUS [Concomitant]
     Dosage: 15 ut, before sleep
     Route: 058
     Dates: start: 20060808
  8. CITRACAL [Concomitant]
     Dosage: UNK, tid
     Route: 048
     Dates: start: 20070326
  9. FOLIC ACID [Concomitant]
     Dosage: 400 mg, qd
     Route: 048
     Dates: start: 20070326
  10. COREG [Concomitant]
     Dosage: 25 mg, bid
     Route: 048
     Dates: start: 20110421
  11. ALLOPURINOL [Concomitant]
     Dosage: 300 mg, qd
     Dates: start: 20120202
  12. FUROSEMIDE [Concomitant]
     Dosage: 40 mg, morning
     Route: 048
     Dates: start: 20120202

REACTIONS (16)
  - Respiratory failure [Fatal]
  - Herpes simplex [Unknown]
  - Renal failure acute [Unknown]
  - Dehydration [Unknown]
  - Diabetes mellitus inadequate control [Unknown]
  - Pneumonia [Unknown]
  - Malnutrition [Unknown]
  - Urinary tract infection [Unknown]
  - Fall [None]
  - Odynophagia [Unknown]
  - Aphthous stomatitis [Unknown]
  - Diarrhoea [Unknown]
  - Platelet count decreased [Recovered/Resolved]
  - White blood cell count decreased [Recovered/Resolved]
  - Haemoglobin decreased [Not Recovered/Not Resolved]
  - Haematocrit decreased [Not Recovered/Not Resolved]
